FAERS Safety Report 8866277 (Version 1)
Quarter: 2012Q4

REPORT INFORMATION
  Report Type: 
  Country: US (occurrence: US)
  Receive Date: 20121025
  Receipt Date: 20121025
  Transmission Date: 20130627
  Serious: No
  Sender: FDA-Public Use
  Company Number: US-ROCHE-GNE230359

PATIENT
  Age: 58 Year
  Sex: Female

DRUGS (4)
  1. RAPTIVA [Suspect]
     Indication: PSORIASIS
     Dosage: 0.6 UNK, 1/Week
     Route: 058
     Dates: start: 20060920
  2. RAPTIVA [Suspect]
     Indication: PUSTULAR PSORIASIS
  3. LISINOPRIL [Concomitant]
     Indication: PRODUCT USED FOR UNKNOWN INDICATION
  4. TOPROL XL [Concomitant]
     Indication: PRODUCT USED FOR UNKNOWN INDICATION

REACTIONS (4)
  - Myalgia [Unknown]
  - Rash [Unknown]
  - Haemorrhage [Unknown]
  - Musculoskeletal disorder [Unknown]
